FAERS Safety Report 9684851 (Version 2)
Quarter: 2014Q2

REPORT INFORMATION
  Report Type: Spontaneous
  Country: US (occurrence: US)
  Receive Date: 20131112
  Receipt Date: 20140613
  Transmission Date: 20141212
  Serious: No
  Sender: FDA-Public Use
  Company Number: US-009507513-1311USA004021

PATIENT
  Age: 72 Year
  Sex: Female
  Weight: 56.69 kg

DRUGS (2)
  1. CLARITIN [Suspect]
     Indication: ALLERGIC SINUSITIS
     Dosage: 10 MG, QD
     Route: 048
  2. CLARITIN [Suspect]
     Indication: HYPERSENSITIVITY

REACTIONS (1)
  - Stomatitis [Recovered/Resolved]
